FAERS Safety Report 4730213-0 (Version None)
Quarter: 2005Q3

REPORT INFORMATION
  Report Type: 
  Country: None (occurrence: None)
  Receive Date: 20050801
  Receipt Date: 20050722
  Transmission Date: 20060218
  Serious: Yes (Hospitalization)
  Sender: FDA-Public Use
  Company Number: 2005CG01290

PATIENT
  Age: 43 Year
  Sex: Female
  Weight: 57 kg

DRUGS (5)
  1. FOSCAVIR [Suspect]
     Indication: CYTOMEGALOVIRUS INFECTION
     Route: 042
     Dates: start: 20050608, end: 20050616
  2. NEXIUM [Concomitant]
     Route: 048
     Dates: start: 20050608
  3. WELLVONE [Concomitant]
     Indication: PNEUMOCYSTIS JIROVECI PNEUMONIA
     Route: 048
     Dates: start: 20050615
  4. ACETAMINOPHEN [Concomitant]
     Route: 048
     Dates: start: 20050603
  5. SPORANOX [Concomitant]
     Indication: HISTOPLASMOSIS
     Route: 048
     Dates: start: 20050612

REACTIONS (2)
  - NEPHROTIC SYNDROME [None]
  - RENAL FAILURE ACUTE [None]
